FAERS Safety Report 11748452 (Version 2)
Quarter: 2016Q2

REPORT INFORMATION
  Report Type: Report from Study
  Country: JP (occurrence: JP)
  Receive Date: 20151117
  Receipt Date: 20160521
  Transmission Date: 20160815
  Serious: Yes (Death, Hospitalization)
  Sender: FDA-Public Use
  Company Number: JP-009507513-1511JPN007538

PATIENT
  Age: 3 Year
  Sex: Male
  Weight: 15 kg

DRUGS (16)
  1. VEPESID [Suspect]
     Active Substance: ETOPOSIDE
     Dosage: DAILY DOSAGE UNKNOWN
     Route: 041
     Dates: start: 20120912, end: 20120915
  2. ALKERAN [Suspect]
     Active Substance: MELPHALAN
     Dosage: DAILY DOSAGE UNKNOWN
     Route: 041
     Dates: start: 20120917, end: 20120918
  3. AMIKACIN SULFATE. [Suspect]
     Active Substance: AMIKACIN SULFATE
     Indication: FEBRILE NEUTROPENIA
     Dosage: DAILY DOSAGE UNKNOWN
     Route: 041
     Dates: start: 20120725, end: 20120730
  4. GRANISETRON [Concomitant]
     Active Substance: GRANISETRON
     Indication: PROPHYLAXIS
     Dosage: DAILY DOSAGE UNKNOWN
     Route: 042
     Dates: start: 20120723, end: 20120728
  5. PARAPLATIN [Suspect]
     Active Substance: CARBOPLATIN
     Dosage: DAILY DOSAGE UNKNOWN
     Route: 041
     Dates: start: 20120912, end: 20120915
  6. AMIKACIN SULFATE. [Suspect]
     Active Substance: AMIKACIN SULFATE
     Indication: PYREXIA
     Dosage: DAILY DOSAGE UNKNOWN
     Route: 041
     Dates: start: 20120804, end: 20120817
  7. VANCOMYCIN HYDROCHLORIDE. [Suspect]
     Active Substance: VANCOMYCIN HYDROCHLORIDE
     Indication: FEBRILE NEUTROPENIA
     Dosage: DAILY DOSAGE UNKNOWN
     Route: 041
     Dates: start: 20120806, end: 20120817
  8. ENDOXAN [Suspect]
     Active Substance: CYCLOPHOSPHAMIDE
     Dosage: TOTAL DAILY DOSE UNKNOWN. TEN TIMES
     Route: 041
     Dates: start: 20120227, end: 20120724
  9. VANCOMYCIN HYDROCHLORIDE. [Suspect]
     Active Substance: VANCOMYCIN HYDROCHLORIDE
     Dosage: DAILY DOSAGE UNKNOWN
     Route: 041
     Dates: start: 20120924, end: 20121004
  10. FUNGIZONE [Concomitant]
     Active Substance: AMPHOTERICIN B
     Indication: PROPHYLAXIS
     Dosage: DAILY DOSE UNKNOWN
     Route: 048
     Dates: end: 20120919
  11. ONCOVIN [Suspect]
     Active Substance: VINCRISTINE SULFATE
     Dosage: DAILY DOSAGE UNKNOWN, FIVE TIMES
     Route: 042
     Dates: start: 20120225, end: 20120723
  12. HYCAMTIN [Suspect]
     Active Substance: TOPOTECAN HYDROCHLORIDE
     Dosage: DAILY DOSAGE UNKNOWN
     Route: 041
     Dates: start: 20140709, end: 20140713
  13. AMIKACIN SULFATE. [Suspect]
     Active Substance: AMIKACIN SULFATE
     Indication: WHITE BLOOD CELL COUNT DECREASED
     Dosage: DAILY DOSAGE UNKNOWN
     Route: 041
     Dates: start: 20120912, end: 20121003
  14. TEMOZOLOMIDE. [Suspect]
     Active Substance: TEMOZOLOMIDE
     Indication: NEUROBLASTOMA
     Dosage: 75 MG/M2, QD
     Route: 041
     Dates: start: 20140709, end: 20140713
  15. PINORUBIN [Suspect]
     Active Substance: PIRARUBICIN
     Dosage: TOTAL DAILY DOSE UNKNOWN. FIVE TIMES
     Route: 041
     Dates: start: 20120229, end: 20120725
  16. BRIPLATIN [Suspect]
     Active Substance: CISPLATIN
     Dosage: DAILY DOSAGE UNKNOWN
     Route: 041
     Dates: start: 20120723, end: 20120727

REACTIONS (58)
  - Febrile neutropenia [Recovered/Resolved]
  - Febrile neutropenia [Recovered/Resolved]
  - Hypoproteinaemia [Recovered/Resolved]
  - Platelet count decreased [Recovered/Resolved]
  - Neutrophil count decreased [Recovered/Resolved]
  - Hypokalaemia [Unknown]
  - Platelet count decreased [Recovered/Resolved]
  - C-reactive protein increased [Recovered/Resolved]
  - Platelet count decreased [Recovered/Resolved]
  - Aspartate aminotransferase increased [Not Recovered/Not Resolved]
  - Blood bilirubin increased [Not Recovered/Not Resolved]
  - Blood creatinine increased [Not Recovered/Not Resolved]
  - Blood urea increased [Not Recovered/Not Resolved]
  - Blood creatinine increased [Not Recovered/Not Resolved]
  - White blood cell count decreased [Unknown]
  - Hypokalaemia [Recovered/Resolved]
  - Lymphocyte count decreased [Recovered/Resolved]
  - Anaemia [Recovered/Resolved]
  - C-reactive protein increased [Not Recovered/Not Resolved]
  - Protein urine present [Not Recovered/Not Resolved]
  - Blood alkaline phosphatase increased [Not Recovered/Not Resolved]
  - Febrile neutropenia [Recovered/Resolved]
  - Blood lactate dehydrogenase increased [Recovered/Resolved]
  - Electrolyte imbalance [Recovered/Resolved]
  - Anaemia [Unknown]
  - Anaemia [Not Recovered/Not Resolved]
  - Hypochloraemia [Not Recovered/Not Resolved]
  - Blood urea increased [Not Recovered/Not Resolved]
  - Pyrexia [Recovered/Resolved]
  - Aspartate aminotransferase increased [Recovered/Resolved]
  - Glucose urine [Recovered/Resolved]
  - Disease progression [Fatal]
  - Sepsis [Recovered/Resolved]
  - Blood urea increased [Recovered/Resolved]
  - Hyperuricaemia [Recovered/Resolved]
  - Hypokalaemia [Recovered/Resolved]
  - Lymphocyte count decreased [Recovered/Resolved]
  - Blood urea increased [Recovered/Resolved]
  - Anaemia [Recovered/Resolved]
  - Blood bilirubin increased [Recovered/Resolved]
  - Hypoalbuminaemia [Recovered/Resolved]
  - Blood lactate dehydrogenase increased [Recovered/Resolved]
  - Blood urine present [Not Recovered/Not Resolved]
  - Platelet count decreased [Recovered/Resolved]
  - White blood cell count decreased [Recovered/Resolved]
  - Hypochloraemia [Recovered/Resolved]
  - Blood lactate dehydrogenase increased [Not Recovered/Not Resolved]
  - Lymphocyte count decreased [Not Recovered/Not Resolved]
  - Gamma-glutamyltransferase increased [Not Recovered/Not Resolved]
  - Blood uric acid increased [Not Recovered/Not Resolved]
  - Cytomegalovirus infection [Recovered/Resolved]
  - Alanine aminotransferase increased [Recovered/Resolved]
  - Protein urine [Not Recovered/Not Resolved]
  - White blood cell count decreased [Recovered/Resolved]
  - Anaemia [Recovered/Resolved]
  - Hypokalaemia [Not Recovered/Not Resolved]
  - Alanine aminotransferase increased [Recovered/Resolved]
  - Bilirubin conjugated increased [Not Recovered/Not Resolved]

NARRATIVE: CASE EVENT DATE: 20120711
